FAERS Safety Report 9582003 (Version 4)
Quarter: 2013Q4

REPORT INFORMATION
  Report Type: Spontaneous
  Country: JP (occurrence: JP)
  Receive Date: 20131002
  Receipt Date: 20131104
  Transmission Date: 20140711
  Serious: Yes (Hospitalization)
  Sender: FDA-Public Use
  Company Number: JP-B.I. PHARMACEUTICALS,INC./RIDGEFIELD-2013-BI-30425NB

PATIENT
  Age: 70 Year
  Sex: Female

DRUGS (6)
  1. TRAZENTA [Suspect]
     Indication: TYPE 2 DIABETES MELLITUS
     Dosage: 5 MG
     Route: 048
     Dates: start: 20130604, end: 20130920
  2. BASEN OD [Suspect]
     Indication: TYPE 2 DIABETES MELLITUS
     Dosage: 0.6 MG
     Route: 048
     Dates: start: 20090722, end: 20130920
  3. CRESTOR [Suspect]
     Indication: HYPERCHOLESTEROLAEMIA
     Dosage: 2.5 MG
     Route: 048
     Dates: start: 20090722, end: 20130920
  4. TAKEPRON [Suspect]
     Indication: GASTROOESOPHAGEAL REFLUX DISEASE
     Dosage: 15 MG
     Route: 048
     Dates: start: 20090722
  5. LOXONIN [Concomitant]
     Indication: OSTEOARTHRITIS
     Dosage: 100 MG
     Route: 062
     Dates: start: 20100722, end: 20130920
  6. DEPAS [Concomitant]
     Indication: ILL-DEFINED DISORDER
     Dosage: 0.5 MG
     Route: 048
     Dates: start: 20090722, end: 20130920

REACTIONS (4)
  - Thrombocytopenia [Unknown]
  - Pruritus [Unknown]
  - Haemorrhage subcutaneous [Unknown]
  - Haemorrhage subcutaneous [Unknown]
